FAERS Safety Report 18615370 (Version 1)
Quarter: 2020Q4

REPORT INFORMATION
  Report Type: Spontaneous
  Country: US (occurrence: US)
  Receive Date: 20201215
  Receipt Date: 20201215
  Transmission Date: 20210114
  Serious: No
  Sender: FDA-Public Use
  Company Number: US-AMGEN-USASP2020202838

PATIENT
  Sex: Female

DRUGS (6)
  1. KANJINTI [Suspect]
     Active Substance: TRASTUZUMAB-ANNS
     Indication: BREAST CANCER
     Route: 065
  2. KANJINTI [Suspect]
     Active Substance: TRASTUZUMAB-ANNS
     Indication: POSTMASTECTOMY LYMPHOEDEMA SYNDROME
  3. TAXOTERE [Concomitant]
     Active Substance: DOCETAXEL
  4. KANJINTI [Suspect]
     Active Substance: TRASTUZUMAB-ANNS
     Indication: NEOPLASM
  5. CARBOPLATIN. [Concomitant]
     Active Substance: CARBOPLATIN
  6. KANJINTI [Suspect]
     Active Substance: TRASTUZUMAB-ANNS
     Indication: AGRANULOCYTOSIS

REACTIONS (3)
  - Localised oedema [Unknown]
  - Generalised anxiety disorder [Unknown]
  - Pain in extremity [Unknown]
